FAERS Safety Report 10461066 (Version 1)
Quarter: 2014Q3

REPORT INFORMATION
  Report Type: Report from Study
  Country: US (occurrence: US)
  Receive Date: 20140918
  Receipt Date: 20140918
  Transmission Date: 20150326
  Serious: Yes (Hospitalization)
  Sender: FDA-Public Use
  Company Number: US-JNJFOC-20140909942

PATIENT
  Age: 46 Year
  Sex: Male
  Weight: 108.4 kg

DRUGS (3)
  1. APAP [Suspect]
     Active Substance: ACETAMINOPHEN
     Indication: SELF INJURIOUS BEHAVIOUR
     Route: 048
     Dates: start: 201409
  2. APAP [Suspect]
     Active Substance: ACETAMINOPHEN
     Route: 048
  3. ETHANOL [Suspect]
     Active Substance: ALCOHOL
     Indication: SELF INJURIOUS BEHAVIOUR
     Route: 048
     Dates: start: 201409

REACTIONS (8)
  - Aspartate aminotransferase increased [Unknown]
  - Prothrombin time prolonged [Unknown]
  - Abdominal pain [Unknown]
  - Vomiting [Unknown]
  - Alcoholic liver disease [Unknown]
  - Blood bilirubin increased [Unknown]
  - Intentional overdose [Unknown]
  - Alanine aminotransferase increased [Unknown]

NARRATIVE: CASE EVENT DATE: 20140908
